FAERS Safety Report 15972630 (Version 1)
Quarter: 2019Q1

REPORT INFORMATION
  Report Type: Spontaneous
  Country: PL (occurrence: PL)
  Receive Date: 20190216
  Receipt Date: 20190216
  Transmission Date: 20190418
  Serious: Yes (Other)
  Sender: FDA-Public Use
  Company Number: PL-ROCHE-2266746

PATIENT
  Age: 69 Year
  Sex: Male
  Weight: 78 kg

DRUGS (5)
  1. LACIPIL [Concomitant]
     Active Substance: LACIDIPINE
     Indication: HYPERTENSION
     Route: 048
     Dates: start: 20160510
  2. ACARD [Concomitant]
     Active Substance: ASPIRIN
     Indication: MYOCARDIAL ISCHAEMIA
     Route: 048
     Dates: start: 20160510
  3. TRITACE [Concomitant]
     Active Substance: RAMIPRIL
     Indication: HYPERTENSION
     Route: 048
     Dates: start: 20160510
  4. ESBRIET [Suspect]
     Active Substance: PIRFENIDONE
     Indication: IDIOPATHIC PULMONARY FIBROSIS
     Dosage: 267 MGX3
     Route: 048
     Dates: start: 20180410, end: 20180523
  5. BISOCARD [Concomitant]
     Active Substance: BISOPROLOL
     Indication: MYOCARDIAL ISCHAEMIA
     Dosage: 5 MG
     Route: 048
     Dates: start: 20160510

REACTIONS (1)
  - Skin lesion [Recovered/Resolved]

NARRATIVE: CASE EVENT DATE: 20180510
